FAERS Safety Report 8262020-9 (Version None)
Quarter: 2012Q2

REPORT INFORMATION
  Report Type: 
  Country: None (occurrence: None)
  Receive Date: 20120402
  Receipt Date: 20120323
  Transmission Date: 20120825
  Serious: Yes (Hospitalization, Other)
  Sender: FDA-Public Use
  Company Number: 2012SP016674

PATIENT
  Age: 31 Year
  Sex: Female

DRUGS (2)
  1. PROMAZINE HYDROCHLORIDE [Suspect]
     Indication: PRODUCT USED FOR UNKNOWN INDICATION
     Dosage: 1500 MG;ONCE;
     Dates: start: 20110714, end: 20110714
  2. REMERON [Suspect]
     Indication: PRODUCT USED FOR UNKNOWN INDICATION
     Dosage: 150 MG;ONCE;
     Dates: start: 20110714, end: 20110714

REACTIONS (7)
  - SUICIDE ATTEMPT [None]
  - TACHYCARDIA [None]
  - COMA [None]
  - EXTRAPYRAMIDAL DISORDER [None]
  - ELECTROCARDIOGRAM QT PROLONGED [None]
  - DYSARTHRIA [None]
  - OVERDOSE [None]
